FAERS Safety Report 4767541-9 (Version None)
Quarter: 2005Q3

REPORT INFORMATION
  Report Type: 
  Country: None (occurrence: None)
  Receive Date: 20050913
  Receipt Date: 20050311
  Transmission Date: 20060218
  Serious: Yes (Other)
  Sender: FDA-Public Use
  Company Number: US-MERCK-0503USA02645

PATIENT
  Age: 51 Year
  Sex: Female
  Weight: 66 kg

DRUGS (7)
  1. VIOXX [Suspect]
     Indication: ARTHRITIS
     Route: 048
     Dates: start: 20010301, end: 20040101
  2. VIOXX [Suspect]
     Route: 048
     Dates: start: 20010301, end: 20040101
  3. ULTRACET [Concomitant]
     Indication: MYOSITIS
     Route: 065
     Dates: start: 20030616
  4. ULTRACET [Concomitant]
     Indication: RADICULOPATHY
     Route: 065
     Dates: start: 20030616
  5. ORTHO TRI-CYCLEN [Concomitant]
     Route: 065
  6. LEXAPRO [Concomitant]
     Route: 065
  7. CLARITIN [Concomitant]
     Route: 065

REACTIONS (25)
  - ARTHRALGIA [None]
  - BACK INJURY [None]
  - BONE LESION [None]
  - BRONCHITIS [None]
  - CATARACT [None]
  - CEREBROVASCULAR ACCIDENT [None]
  - CERVICOBRACHIAL SYNDROME [None]
  - CHEST PAIN [None]
  - DEPRESSION [None]
  - EYE SWELLING [None]
  - FATIGUE [None]
  - HEADACHE [None]
  - JOINT INJURY [None]
  - LACUNAR INFARCTION [None]
  - MENISCUS LESION [None]
  - MYOSITIS [None]
  - NECK PAIN [None]
  - PHOTOPSIA [None]
  - SINUSITIS [None]
  - SPINAL OSTEOARTHRITIS [None]
  - SYNCOPE [None]
  - SYNOVITIS [None]
  - TRACHEOBRONCHITIS [None]
  - ULNAR NERVE INJURY [None]
  - VISION BLURRED [None]
